FAERS Safety Report 9113303 (Version 2)
Quarter: 2013Q2

REPORT INFORMATION
  Report Type: Spontaneous
  Country: US (occurrence: US)
  Receive Date: 20130211
  Receipt Date: 20130405
  Transmission Date: 20140414
  Serious: Yes (Other)
  Sender: FDA-Public Use
  Company Number: US-SANOFI-AVENTIS-2013SA006114

PATIENT
  Age: 43 Year
  Sex: Male

DRUGS (2)
  1. AUBAGIO [Suspect]
     Indication: MULTIPLE SCLEROSIS
     Route: 048
     Dates: start: 20130117, end: 20130130
  2. AUBAGIO [Suspect]
     Indication: MULTIPLE SCLEROSIS
     Dosage: EVERY OTHER DAY
     Route: 048
     Dates: start: 20130217, end: 20130222

REACTIONS (20)
  - Chest pain [Unknown]
  - Dyspnoea [Unknown]
  - Eye movement disorder [Unknown]
  - Multiple sclerosis [Unknown]
  - Fatigue [Unknown]
  - Trismus [Unknown]
  - Pain in extremity [Unknown]
  - Hypoaesthesia oral [Unknown]
  - Pain in extremity [Unknown]
  - Dysphagia [Unknown]
  - Feeling hot [Unknown]
  - Paraesthesia [Unknown]
  - Arthropathy [Unknown]
  - Gait disturbance [Unknown]
  - Speech disorder [Unknown]
  - Gait disturbance [Unknown]
  - Mental disorder [Unknown]
  - Dysgeusia [Unknown]
  - Haematochezia [Unknown]
  - Oropharyngeal pain [Unknown]
